FAERS Safety Report 21099435 (Version 2)
Quarter: 2023Q1

REPORT INFORMATION
  Report Type: Spontaneous
  Country: IN (occurrence: IN)
  Receive Date: 20220719
  Receipt Date: 20230123
  Transmission Date: 20230418
  Serious: Yes (Other)
  Sender: FDA-Public Use
  Company Number: IN-PFIZER INC-PV202200021039

PATIENT
  Age: 74 Year
  Sex: Male

DRUGS (4)
  1. PALBOCICLIB [Suspect]
     Active Substance: PALBOCICLIB
     Indication: Breast cancer metastatic
     Dosage: 125 MG, 1X/DAY (21DAYS ON + 7 DAYS OFF)
     Route: 048
     Dates: start: 20220422
  2. LETROZOLE [Concomitant]
     Active Substance: LETROZOLE
     Dosage: (2.5 MG)  1-0-0 X 30 DAY
  3. CCM [Concomitant]
     Dosage: 0-1-0 X 30 DAY
  4. LETROZOLE [Concomitant]
     Active Substance: LETROZOLE
     Dosage: (2.5 MG) 1-0-0 X 30 DAY

REACTIONS (6)
  - Blood pressure increased [Unknown]
  - Mucosal inflammation [Unknown]
  - Haemoglobin decreased [Unknown]
  - White blood cell count decreased [Unknown]
  - Platelet count decreased [Unknown]
  - Weight increased [Unknown]

NARRATIVE: CASE EVENT DATE: 20220101
